FAERS Safety Report 21363433 (Version 8)
Quarter: 2023Q1

REPORT INFORMATION
  Report Type: Report from Study
  Country: US (occurrence: US)
  Receive Date: 20220922
  Receipt Date: 20230309
  Transmission Date: 20230418
  Serious: Yes (Other)
  Sender: FDA-Public Use
  Company Number: US-NOVARTISTESTPH-NVSC2022US213803

PATIENT
  Age: 54 Year
  Sex: Male

DRUGS (3)
  1. COSENTYX [Suspect]
     Active Substance: SECUKINUMAB
     Indication: Ankylosing spondylitis
     Dosage: 300 MG, QMO
     Route: 058
     Dates: start: 202206
  2. COSENTYX [Suspect]
     Active Substance: SECUKINUMAB
     Indication: Axial spondyloarthritis
     Dosage: UNK
     Route: 065
     Dates: start: 20221228
  3. DULOXETINE [Suspect]
     Active Substance: DULOXETINE
     Indication: Neuralgia
     Dosage: UNK
     Route: 065

REACTIONS (29)
  - Lyme disease [Unknown]
  - Illness [Recovering/Resolving]
  - Scratch [Unknown]
  - Bursitis [Unknown]
  - Arthralgia [Unknown]
  - Tendon rupture [Unknown]
  - Peripheral swelling [Unknown]
  - Joint swelling [Unknown]
  - Infection [Recovering/Resolving]
  - Pain [Unknown]
  - Swelling [Unknown]
  - Erythema [Unknown]
  - Inflammation [Unknown]
  - Respiratory tract infection viral [Recovering/Resolving]
  - Dizziness [Recovering/Resolving]
  - Sinusitis [Recovering/Resolving]
  - Ear pain [Recovering/Resolving]
  - Oropharyngeal pain [Recovering/Resolving]
  - Hyperhidrosis [Recovering/Resolving]
  - Chills [Recovering/Resolving]
  - Myalgia [Recovering/Resolving]
  - Fatigue [Unknown]
  - Nausea [Recovering/Resolving]
  - Condition aggravated [Recovering/Resolving]
  - Speech disorder [Recovering/Resolving]
  - Stress [Unknown]
  - Memory impairment [Recovering/Resolving]
  - Ill-defined disorder [Recovering/Resolving]
  - Therapeutic response shortened [Unknown]

NARRATIVE: CASE EVENT DATE: 20221230
